FAERS Safety Report 24584478 (Version 1)
Quarter: 2024Q4

REPORT INFORMATION
  Report Type: Spontaneous
  Country: US (occurrence: US)
  Receive Date: 20241106
  Receipt Date: 20241106
  Transmission Date: 20250115
  Serious: Yes (Hospitalization, Other)
  Sender: PFIZER
  Company Number: US-PFIZER INC-PV202400050258

PATIENT
  Age: 83 Year
  Sex: Male

DRUGS (1)
  1. NURTEC ODT [Suspect]
     Active Substance: RIMEGEPANT SULFATE
     Indication: Migraine
     Dosage: 1 TABLET ONCE DAILY AS NEEDED /DISSOLVE 1 TABLET ON TONGUE ONCE DAILY AS NEEDED
     Route: 048

REACTIONS (1)
  - Pneumonia [Unknown]
